FAERS Safety Report 4362582-8 (Version None)
Quarter: 2004Q2

REPORT INFORMATION
  Report Type: 
  Country: None (occurrence: None)
  Receive Date: 20040520
  Receipt Date: 20040504
  Transmission Date: 20050107
  Serious: Yes (Hospitalization, Other)
  Sender: FDA-Public Use
  Company Number: T02-USA-03157-01

PATIENT
  Age: 64 Year
  Sex: Male
  Weight: 67.1324 kg

DRUGS (13)
  1. MEMANTINE HCL [Suspect]
     Indication: DEMENTIA ALZHEIMER'S TYPE
     Dosage: 20 MG QD PO
     Route: 048
     Dates: start: 20020910
  2. MEMANTINE HCL [Suspect]
     Indication: DEMENTIA ALZHEIMER'S TYPE
     Dosage: 5 MG QHS PO
     Route: 048
     Dates: start: 20020708, end: 20020722
  3. MEMANTINE HCL [Suspect]
     Indication: DEMENTIA ALZHEIMER'S TYPE
     Dosage: 10 MG QHS PO
     Route: 048
     Dates: start: 20020723, end: 20020805
  4. MEMANTINE HCL [Suspect]
     Indication: DEMENTIA ALZHEIMER'S TYPE
     Dosage: 15 MG QHS PO
     Route: 048
     Dates: start: 20020806, end: 20020819
  5. MEMANTINE HCL [Suspect]
     Indication: DEMENTIA ALZHEIMER'S TYPE
     Dosage: 20 MG QHS PO
     Route: 048
     Dates: start: 20020820, end: 20020901
  6. ATORVASTATIN CALCIUM [Concomitant]
  7. VITAMIN E [Concomitant]
  8. GINKGO BILOBA [Concomitant]
  9. ASPIRIN [Concomitant]
  10. VITAMIN B COMPLEX CAP [Concomitant]
  11. FOLIC ACID [Concomitant]
  12. CALCIUM [Concomitant]
  13. SERTRALINE [Concomitant]

REACTIONS (8)
  - BENIGN PROSTATIC HYPERPLASIA [None]
  - BLADDER CANCER [None]
  - BLOOD GLUCOSE DECREASED [None]
  - BUNDLE BRANCH BLOCK RIGHT [None]
  - CYSTITIS NONINFECTIVE [None]
  - LYMPHOCYTE COUNT DECREASED [None]
  - NEUTROPHIL COUNT INCREASED [None]
  - VENTRICULAR HYPERTROPHY [None]
